FAERS Safety Report 17681165 (Version 3)
Quarter: 2020Q2

REPORT INFORMATION
  Report Type: Spontaneous
  Country: PE (occurrence: PE)
  Receive Date: 20200417
  Receipt Date: 20200428
  Transmission Date: 20200714
  Serious: Yes (Death, Other)
  Sender: FDA-Public Use
  Company Number: PE-EISAI MEDICAL RESEARCH-EC-2020-073385

PATIENT
  Age: 18 Year
  Sex: Male

DRUGS (1)
  1. HALAVEN [Suspect]
     Active Substance: ERIBULIN MESYLATE
     Indication: PLEOMORPHIC LEIOMYOSARCOMA
     Dosage: DOSE UNKNOWN
     Route: 042
     Dates: start: 2020, end: 20200328

REACTIONS (4)
  - Malignant neoplasm progression [Fatal]
  - Haemorrhage [Unknown]
  - Cyanosis [Unknown]
  - Bronchospasm [Unknown]

NARRATIVE: CASE EVENT DATE: 2020
